FAERS Safety Report 10504581 (Version 1)
Quarter: 2014Q3

REPORT INFORMATION
  Report Type: Spontaneous
  Country: US (occurrence: None)
  Receive Date: 20140912
  Receipt Date: 20140912
  Transmission Date: 20150326
  Serious: Yes (Other)
  Sender: FDA-Public Use
  Company Number: 1000067016

PATIENT
  Age: 73 Year
  Sex: Male
  Weight: 88.9 kg

DRUGS (4)
  1. DALIRESP [Suspect]
     Active Substance: ROFLUMILAST
     Indication: CHRONIC OBSTRUCTIVE PULMONARY DISEASE
     Dosage: 1 IN 1 D
     Route: 048
     Dates: start: 20140430, end: 20140430
  2. OXYGEN. [Concomitant]
     Active Substance: OXYGEN
  3. INSULIN [Concomitant]
     Active Substance: INSULIN NOS
  4. DALIRESP [Suspect]
     Active Substance: ROFLUMILAST
     Indication: CHRONIC OBSTRUCTIVE PULMONARY DISEASE
     Dosage: 1 IN 1 D
     Route: 048
     Dates: start: 20140401, end: 20140414

REACTIONS (7)
  - Nausea [None]
  - Weight decreased [None]
  - Dizziness [None]
  - Fatigue [None]
  - Decreased appetite [None]
  - Influenza like illness [None]
  - Diarrhoea [None]

NARRATIVE: CASE EVENT DATE: 201404
